FAERS Safety Report 20292118 (Version 1)
Quarter: 2022Q1

REPORT INFORMATION
  Report Type: Spontaneous
  Country: US (occurrence: None)
  Receive Date: 20220104
  Receipt Date: 20220104
  Transmission Date: 20220423
  Serious: Yes (Other)
  Sender: FDA-Public Use
  Company Number: None

PATIENT
  Age: 81 Year
  Sex: Female
  Weight: 95 kg

DRUGS (1)
  1. PRIVIGEN [Suspect]
     Active Substance: HUMAN IMMUNOGLOBULIN G
     Indication: Immune thrombocytopenia
     Dosage: OTHER FREQUENCY : EVERY 2-4 WEEKS;?
     Route: 041

REACTIONS (4)
  - Pruritus [None]
  - Infusion related reaction [None]
  - Product quality issue [None]
  - Recalled product administered [None]

NARRATIVE: CASE EVENT DATE: 20220104
